FAERS Safety Report 4265878-3 (Version None)
Quarter: 2004Q1

REPORT INFORMATION
  Report Type: 
  Country: None (occurrence: None)
  Receive Date: 20040107
  Receipt Date: 20040107
  Transmission Date: 20041129
  Serious: Yes (Other)
  Sender: FDA-Public Use
  Company Number: None

PATIENT
  Age: 55 Year
  Sex: Female
  Weight: 112.9457 kg

DRUGS (1)
  1. GAMMAR [Suspect]
     Indication: HYPOGAMMAGLOBULINAEMIA
     Dosage: 35 GM  Q 3WEEKS  INTRAVENOUS
     Route: 042
     Dates: start: 20031119, end: 20031119

REACTIONS (4)
  - BLOOD PRESSURE INCREASED [None]
  - CHEST DISCOMFORT [None]
  - MEDICATION ERROR [None]
  - PRURITUS [None]
